FAERS Safety Report 7326508-7 (Version None)
Quarter: 2011Q1

REPORT INFORMATION
  Report Type: 
  Country: None (occurrence: None)
  Receive Date: 20110302
  Receipt Date: 20110224
  Transmission Date: 20110831
  Serious: Yes (Death)
  Sender: FDA-Public Use
  Company Number: US-GENZYME-FLUD-1000764

PATIENT

DRUGS (4)
  1. TRIMETHOPRIM + SULFAMETHOXAZOLE [Concomitant]
     Indication: ANTIFUNGAL PROPHYLAXIS
     Dosage: UNK
     Route: 065
  2. ACYCLOVIR [Concomitant]
     Indication: ANTIVIRAL PROPHYLAXIS
     Dosage: UNK
     Route: 065
  3. TREOSULFAN [Suspect]
     Indication: SURGICAL PRECONDITIONING
     Dosage: UNK
     Route: 065
  4. FLUDARA [Suspect]
     Indication: SURGICAL PRECONDITIONING
     Dosage: 30 MG/M2, QD ON DAYS -6 TO -2
     Route: 042

REACTIONS (1)
  - BRONCHOPULMONARY ASPERGILLOSIS [None]
